FAERS Safety Report 19419375 (Version 1)
Quarter: 2021Q2

REPORT INFORMATION
  Report Type: Report from Study
  Country: PL (occurrence: PL)
  Receive Date: 20210615
  Receipt Date: 20210615
  Transmission Date: 20210717
  Serious: Yes (Other)
  Sender: FDA-Public Use
  Company Number: NVSC2021PL128585

PATIENT

DRUGS (1)
  1. METFORMIN [Suspect]
     Active Substance: METFORMIN HYDROCHLORIDE
     Indication: PRODUCT USED FOR UNKNOWN INDICATION
     Dosage: UNK
     Route: 065

REACTIONS (23)
  - Gout [Unknown]
  - Peripheral arterial occlusive disease [Unknown]
  - Non-alcoholic steatohepatitis [Unknown]
  - Hypertension [Unknown]
  - Coronary artery disease [Unknown]
  - Renal disorder [Unknown]
  - Cardiovascular disorder [Unknown]
  - Arthralgia [Unknown]
  - Fatigue [Unknown]
  - Liver disorder [Unknown]
  - Infection [Unknown]
  - Mental impairment [Unknown]
  - Weight increased [Unknown]
  - Pollakiuria [Unknown]
  - Blood glucose abnormal [Unknown]
  - Hypoglycaemia [Unknown]
  - Anxiety [Unknown]
  - Lethargy [Unknown]
  - Angina pectoris [Unknown]
  - Obesity [Unknown]
  - Nephropathy [Unknown]
  - Vision blurred [Unknown]
  - Nonalcoholic fatty liver disease [Unknown]
